FAERS Safety Report 19877387 (Version 1)
Quarter: 2021Q3

REPORT INFORMATION
  Report Type: Spontaneous
  Country: US (occurrence: US)
  Receive Date: 20210924
  Receipt Date: 20210924
  Transmission Date: 20211014
  Serious: Yes (Disabling, Other)
  Sender: FDA-Public Use
  Company Number: US-SA-2021SA312397

PATIENT
  Age: 18 Year

DRUGS (1)
  1. GOLD BOND ORIGINAL STRENGTH POWDER [Suspect]
     Active Substance: MENTHOL\ZINC OXIDE
     Dosage: UNK

REACTIONS (4)
  - Injury [Unknown]
  - Unevaluable event [Unknown]
  - Mesothelioma [Unknown]
  - Exposure to chemical pollution [Unknown]
